FAERS Safety Report 8180388-9 (Version None)
Quarter: 2012Q1

REPORT INFORMATION
  Report Type: 
  Country: None (occurrence: None)
  Receive Date: 20120302
  Receipt Date: 20120110
  Transmission Date: 20120608
  Serious: No
  Sender: FDA-Public Use
  Company Number: US-COVIDIEN/TYCO HEALTHCARE/MALLINCKRODT-T201200059

PATIENT
  Sex: Male

DRUGS (1)
  1. RESTORIL [Suspect]

REACTIONS (2)
  - FEELING ABNORMAL [None]
  - HANGOVER [None]
